FAERS Safety Report 8429110-9 (Version None)
Quarter: 2012Q2

REPORT INFORMATION
  Report Type: 
  Country: None (occurrence: None)
  Receive Date: 20120612
  Receipt Date: 20120601
  Transmission Date: 20120825
  Serious: Yes (Hospitalization, Other)
  Sender: FDA-Public Use
  Company Number: US-JNJFOC-20120601967

PATIENT
  Sex: Female

DRUGS (2)
  1. DURAGESIC-100 [Suspect]
     Indication: PRODUCT USED FOR UNKNOWN INDICATION
     Route: 062
  2. DURAGESIC-100 [Suspect]
     Route: 062

REACTIONS (6)
  - MALAISE [None]
  - CEREBROVASCULAR ACCIDENT [None]
  - INTERVERTEBRAL DISC PROTRUSION [None]
  - AIR EMBOLISM [None]
  - AMNESIA [None]
  - NERVOUS SYSTEM DISORDER [None]
